FAERS Safety Report 9445235 (Version 1)
Quarter: 2013Q3

REPORT INFORMATION
  Report Type: Spontaneous
  Country: FR (occurrence: FR)
  Receive Date: 20130807
  Receipt Date: 20130807
  Transmission Date: 20140515
  Serious: Yes (Life-Threatening)
  Sender: FDA-Public Use
  Company Number: FR-GLAXOSMITHKLINE-B0912258A

PATIENT
  Age: 65 Year
  Sex: Female

DRUGS (3)
  1. AZANTAC [Suspect]
     Indication: PRODUCT USED FOR UNKNOWN INDICATION
     Dosage: 50MG SINGLE DOSE
     Route: 042
     Dates: start: 20130726, end: 20130726
  2. LOXEN [Suspect]
     Indication: PRODUCT USED FOR UNKNOWN INDICATION
     Dosage: 10MG SINGLE DOSE
     Route: 042
     Dates: start: 20130726, end: 20130726
  3. ACTILYSE [Suspect]
     Indication: THROMBOLYSIS
     Dosage: 66.5MG SINGLE DOSE
     Route: 042
     Dates: start: 20130726, end: 20130726

REACTIONS (4)
  - Anaphylactic shock [Recovered/Resolved]
  - Oxygen saturation decreased [Recovered/Resolved]
  - Motor dysfunction [Recovered/Resolved]
  - Monoplegia [Recovered/Resolved]
